FAERS Safety Report 16730600 (Version 4)
Quarter: 2019Q4

REPORT INFORMATION
  Report Type: Spontaneous
  Country: US (occurrence: US)
  Receive Date: 20190822
  Receipt Date: 20191017
  Transmission Date: 20200122
  Serious: Yes (Other)
  Sender: FDA-Public Use
  Company Number: US-JNJFOC-20190818903

PATIENT
  Age: 64 Year
  Sex: Female
  Weight: 74.91 kg

DRUGS (14)
  1. LEVOTHYROXINE. [Concomitant]
     Active Substance: LEVOTHYROXINE
     Dosage: (SYNTHROID) LEVOTHYROXINE 88 MCG  DAILY
     Route: 048
  2. ALBUTEROL SULFATE. [Concomitant]
     Active Substance: ALBUTEROL SULFATE
     Dosage: INHALE AS NEEDED
     Route: 065
  3. ALPRAZOLAM. [Concomitant]
     Active Substance: ALPRAZOLAM
     Indication: ANXIETY
     Dosage: 0.5 MG (XANAX) AS NEEDED
     Route: 048
  4. METHYLPREDNISOLONE. [Concomitant]
     Active Substance: METHYLPREDNISOLONE
     Dosage: (MEDROL)  DAILY
     Route: 048
  5. HYDROCHLOROTHIAZIDE. [Concomitant]
     Active Substance: HYDROCHLOROTHIAZIDE
     Indication: HYPERTENSION
     Route: 065
     Dates: start: 20190928
  6. FOLIC ACID. [Concomitant]
     Active Substance: FOLIC ACID
     Dosage: FOLVITE
     Route: 048
  7. HYDROCHLOROTHIAZIDE. [Concomitant]
     Active Substance: HYDROCHLOROTHIAZIDE
     Indication: HYPERTENSION
     Route: 065
     Dates: start: 20190928
  8. BUDESONIDE. [Concomitant]
     Active Substance: BUDESONIDE
     Dosage: ENTOCORTEC EC
     Route: 048
  9. ERGOCALCIFEROL. [Concomitant]
     Active Substance: ERGOCALCIFEROL
     Route: 065
  10. FLUTICASONE PROPIONATE. [Concomitant]
     Active Substance: FLUTICASONE PROPIONATE
     Dosage: 1 SPRAY BY EACH NARE ROUTE AS NEEDED (FLONASE)
     Route: 045
  11. MUPIROCIN. [Concomitant]
     Active Substance: MUPIROCIN
     Dosage: (BACTROBAN) APPLY 1 APPLICATION AS NEEDED (APPLY TO WOUNDS)
     Route: 061
  12. FLUOXETINE [Concomitant]
     Active Substance: FLUOXETINE HYDROCHLORIDE
     Dosage: DAILY (PROZAC)
     Route: 065
  13. MIRTAZAPINE. [Concomitant]
     Active Substance: MIRTAZAPINE
     Dosage: (REMERON) 30 MG (TAKE 15 MG BY MOUTH NIGHTLY AS NEEDED)
     Route: 048
  14. SIMPONI [Suspect]
     Active Substance: GOLIMUMAB
     Indication: RHEUMATOID ARTHRITIS
     Route: 058
     Dates: start: 2017

REACTIONS (5)
  - Rheumatoid arthritis [Recovered/Resolved]
  - Product dose omission [Unknown]
  - Drug ineffective [Unknown]
  - Accidental exposure to product [Recovered/Resolved]
  - Device use issue [Recovered/Resolved]

NARRATIVE: CASE EVENT DATE: 201906
